FAERS Safety Report 23881316 (Version 1)
Quarter: 2024Q2

REPORT INFORMATION
  Report Type: Other
  Country: US (occurrence: None)
  Receive Date: 20240521
  Receipt Date: 20240521
  Transmission Date: 20240716
  Serious: Yes (Other)
  Sender: FDA-Public Use
  Company Number: US-ROCHE-2299578

PATIENT
  Age: 50 Year
  Sex: Female
  Weight: 118.95 kg

DRUGS (24)
  1. OCREVUS [Suspect]
     Active Substance: OCRELIZUMAB
     Indication: Relapsing-remitting multiple sclerosis
     Dosage: ONGOING: YES
     Route: 042
     Dates: start: 20190326
  2. TRULICITY [Suspect]
     Active Substance: DULAGLUTIDE
     Indication: Type 2 diabetes mellitus
     Dosage: .75 MG/0.5 ML?ONGOING NO
     Route: 058
     Dates: start: 202011, end: 202012
  3. JANUVIA [Suspect]
     Active Substance: SITAGLIPTIN PHOSPHATE
     Indication: Type 2 diabetes mellitus
     Dosage: ONGOING NO
     Route: 048
     Dates: start: 2020
  4. CILOSTAZOL [Suspect]
     Active Substance: CILOSTAZOL
     Indication: Type 2 diabetes mellitus
     Dosage: 70 TO 80 UNITS IN THE MORNING AND IN THE EVENING
     Route: 058
     Dates: start: 2023
  5. TRAMADOL [Concomitant]
     Active Substance: TRAMADOL\TRAMADOL HYDROCHLORIDE
     Indication: Pain
     Dosage: ONGOING: YES
  6. VITAMIN D3 [Concomitant]
     Active Substance: CHOLECALCIFEROL
     Indication: Vitamin D deficiency
     Dosage: 125 MCG ONCE A DAY ;ONGOING: YES
  7. VITAMIN D3 [Concomitant]
     Active Substance: CHOLECALCIFEROL
     Dosage: (2000 IU) TAKES IT ONCE IN THE EVENING?ONGOING YES
     Route: 048
     Dates: start: 2016
  8. VITAMIN C [Concomitant]
     Active Substance: ASCORBIC ACID
     Dosage: ONGOING: YES
     Route: 048
  9. MAGNESIUM OXIDE [Concomitant]
     Active Substance: MAGNESIUM OXIDE
     Indication: Muscle spasms
     Dosage: ONGOING: YES STARTED IT 8 OR 9 YEARS AGO
     Route: 048
  10. LISINOPRIL [Concomitant]
     Active Substance: LISINOPRIL
     Indication: Hypertension
     Dosage: ONGOING: YES
  11. LISINOPRIL [Concomitant]
     Active Substance: LISINOPRIL
     Dosage: ONGOING YES?ON IT FOR ABOUT 14 YEARS
     Route: 048
  12. JARDIANCE [Concomitant]
     Active Substance: EMPAGLIFLOZIN
     Indication: Type 2 diabetes mellitus
     Dosage: ONGOING: YES
     Route: 048
  13. GABAPENTIN [Concomitant]
     Active Substance: GABAPENTIN
     Dosage: ONGOING: YES
  14. ASPIRIN [Concomitant]
     Active Substance: ASPIRIN
     Dosage: ONGOING: YES
     Route: 048
  15. MODAFINIL [Concomitant]
     Active Substance: MODAFINIL
     Dosage: ONGOING: YES
     Route: 048
     Dates: start: 2019
  16. PROZAC [Concomitant]
     Active Substance: FLUOXETINE HYDROCHLORIDE
     Indication: Depression
     Dosage: ONGOING: YES
     Route: 048
     Dates: start: 2018
  17. BACLOFEN [Concomitant]
     Active Substance: BACLOFEN
     Indication: Pain
     Dosage: ONGOING: YES
     Route: 048
     Dates: start: 2017
  18. GLIPIZIDE [Concomitant]
     Active Substance: GLIPIZIDE
     Indication: Type 2 diabetes mellitus
     Dosage: ONGOING YES
     Route: 048
     Dates: start: 202103
  19. LYRICA [Concomitant]
     Active Substance: PREGABALIN
     Indication: Neuralgia
     Dosage: ONGOING YES
     Route: 048
     Dates: start: 2017
  20. SOLU-MEDROL [Concomitant]
     Active Substance: METHYLPREDNISOLONE SODIUM SUCCINATE
     Dosage: ONGOING YES
     Route: 042
     Dates: start: 20190326
  21. TYLENOL [Concomitant]
     Active Substance: ACETAMINOPHEN
     Dosage: ONGOING YES
     Route: 048
     Dates: start: 20190326
  22. ZYRTEC [Concomitant]
     Active Substance: CETIRIZINE HYDROCHLORIDE
     Dosage: ONGOING YES
     Route: 048
     Dates: start: 20190326
  23. TORADOL [Concomitant]
     Active Substance: KETOROLAC TROMETHAMINE
     Indication: Pain
     Dosage: ONGOING YES
     Route: 042
  24. TORADOL [Concomitant]
     Active Substance: KETOROLAC TROMETHAMINE
     Dosage: ONGOING YES?TAKES IT EVERY MORNING
     Route: 048
     Dates: start: 2018

REACTIONS (9)
  - Multiple sclerosis [Unknown]
  - Pain [Recovered/Resolved]
  - Headache [Recovered/Resolved]
  - Urinary incontinence [Recovered/Resolved]
  - Vitamin B12 increased [Not Recovered/Not Resolved]
  - Dyspepsia [Recovered/Resolved]
  - Diarrhoea [Recovered/Resolved]
  - JC polyomavirus test positive [Not Recovered/Not Resolved]
  - Weight increased [Not Recovered/Not Resolved]

NARRATIVE: CASE EVENT DATE: 20200101
